FAERS Safety Report 5777218-9 (Version None)
Quarter: 2008Q2

REPORT INFORMATION
  Report Type: 
  Country: None (occurrence: None)
  Receive Date: 20080601
  Receipt Date: 20080115
  Transmission Date: 20081010
  Serious: No
  Sender: FDA-Public Use
  Company Number: US200801003211

PATIENT
  Sex: Female

DRUGS (3)
  1. BYETTA [Suspect]
     Dates: start: 20070101
  2. HUMULIN 30/70 (INSULIN HUMAN INJECTION, ISOPHANE) [Concomitant]
  3. ACTOS [Concomitant]

REACTIONS (1)
  - BLOOD GLUCOSE ABNORMAL [None]
